FAERS Safety Report 16594561 (Version 1)
Quarter: 2019Q3

REPORT INFORMATION
  Report Type: Spontaneous
  Country: US (occurrence: US)
  Receive Date: 20190718
  Receipt Date: 20190718
  Transmission Date: 20191004
  Serious: No
  Sender: FDA-Public Use
  Company Number: US-SWEDISH ORPHAN BIOVITRUM-2019US0415

PATIENT
  Sex: Female

DRUGS (2)
  1. KINERET [Suspect]
     Active Substance: ANAKINRA
     Dosage: STARTED ON THREE DOSES A DAY AND SLOWLY TAPERED TO ONE DOSE A DAY
     Route: 058
     Dates: start: 201807
  2. KINERET [Suspect]
     Active Substance: ANAKINRA

REACTIONS (2)
  - Product dose omission [Unknown]
  - Product supply issue [Unknown]
